FAERS Safety Report 14392362 (Version 3)
Quarter: 2018Q1

REPORT INFORMATION
  Report Type: Spontaneous
  Country: CH (occurrence: CH)
  Receive Date: 20180116
  Receipt Date: 20180208
  Transmission Date: 20180509
  Serious: Yes (Other)
  Sender: FDA-Public Use
  Company Number: CH-GILEAD-2018-0315132

PATIENT
  Age: 56 Year
  Sex: Male
  Weight: 85.6 kg

DRUGS (8)
  1. RIFABUTIN. [Concomitant]
     Active Substance: RIFABUTIN
  2. PREZISTA [Concomitant]
     Active Substance: DARUNAVIR ETHANOLATE
     Indication: ANTIRETROVIRAL THERAPY
     Dosage: 800 MG, UNK
     Route: 048
     Dates: start: 20161206, end: 20171020
  3. TRUVADA [Suspect]
     Active Substance: EMTRICITABINE\TENOFOVIR DISOPROXIL FUMARATE
     Indication: ANTIRETROVIRAL THERAPY
     Dosage: 245MG/200MG
     Route: 048
     Dates: start: 20161206, end: 20171222
  4. BACTRIM [Concomitant]
     Active Substance: SULFAMETHOXAZOLE\TRIMETHOPRIM
     Indication: ANTIFUNGAL PROPHYLAXIS
     Dosage: UNK
     Dates: start: 201612
  5. NORVIR [Concomitant]
     Active Substance: RITONAVIR
     Indication: ANTIRETROVIRAL THERAPY
     Dosage: 100 MG, UNK
     Route: 048
     Dates: start: 20161206, end: 20171020
  6. TIVICAY [Concomitant]
     Active Substance: DOLUTEGRAVIR SODIUM
     Dosage: 50 MG, UNK
     Route: 048
     Dates: start: 20171021
  7. CLARITROMYCINE [Concomitant]
  8. ETHAMBUTOL [Concomitant]
     Active Substance: ETHAMBUTOL HYDROCHLORIDE

REACTIONS (4)
  - Cardiac neoplasm unspecified [Not Recovered/Not Resolved]
  - Sexual inhibition [Unknown]
  - Mycobacterial infection [Unknown]
  - Renal impairment [Unknown]

NARRATIVE: CASE EVENT DATE: 20170103
